FAERS Safety Report 13504545 (Version 1)
Quarter: 2017Q2

REPORT INFORMATION
  Report Type: Spontaneous
  Country: US (occurrence: US)
  Receive Date: 20170502
  Receipt Date: 20170502
  Transmission Date: 20170830
  Serious: No
  Sender: FDA-Public Use
  Company Number: US-WARNER CHILCOTT-2016-002340

PATIENT
  Age: 53 Year
  Sex: Female
  Weight: 52 kg

DRUGS (5)
  1. FEMRING [Suspect]
     Active Substance: ESTRADIOL ACETATE
     Dosage: UNK, UNKNOWN
     Route: 067
     Dates: start: 20160906, end: 20160910
  2. FEMRING [Suspect]
     Active Substance: ESTRADIOL ACETATE
     Indication: ATROPHIC VULVOVAGINITIS
     Dosage: UNK, UNKNOWN
     Route: 067
     Dates: start: 20160930, end: 20161001
  3. FEMRING [Suspect]
     Active Substance: ESTRADIOL ACETATE
     Dosage: UNK, UNKNOWN
     Route: 067
     Dates: start: 20160916, end: 20160918
  4. VAGIFEM [Concomitant]
     Active Substance: ESTRADIOL
     Indication: ATROPHIC VULVOVAGINITIS
     Dosage: UNK, UNKNOWN
     Route: 067
     Dates: end: 20160906
  5. VITAMINS NOS [Concomitant]
     Active Substance: VITAMINS
     Indication: SUPPLEMENTATION THERAPY
     Dosage: UNK, UNKNOWN
     Route: 048

REACTIONS (5)
  - Pollakiuria [Recovered/Resolved]
  - Urinary incontinence [Recovered/Resolved]
  - Pruritus [Recovered/Resolved]
  - Adverse event [Recovered/Resolved]
  - Drug ineffective [Recovered/Resolved]

NARRATIVE: CASE EVENT DATE: 20160906
